FAERS Safety Report 19009849 (Version 3)
Quarter: 2022Q1

REPORT INFORMATION
  Report Type: Report from Study
  Country: US (occurrence: US)
  Receive Date: 20210315
  Receipt Date: 20220113
  Transmission Date: 20220423
  Serious: Yes (Hospitalization, Other)
  Sender: FDA-Public Use
  Company Number: US-BRISTOL-MYERS SQUIBB COMPANY-BMS-2021-023354

PATIENT
  Age: 85 Year
  Sex: Male
  Weight: 61.224 kg

DRUGS (5)
  1. APIXABAN [Suspect]
     Active Substance: APIXABAN
     Indication: Deep vein thrombosis
     Dosage: 10 MILLIGRAM, BID
     Route: 048
     Dates: start: 20210104
  2. APIXABAN [Suspect]
     Active Substance: APIXABAN
     Indication: Pulmonary embolism
     Dosage: 5 MILLIGRAM, BID
     Route: 048
     Dates: start: 202101
  3. APIXABAN [Suspect]
     Active Substance: APIXABAN
     Dosage: 2.5 MILLIGRAM, BID
     Route: 048
     Dates: start: 2021
  4. SIMVASTATIN [Concomitant]
     Active Substance: SIMVASTATIN
     Indication: Product used for unknown indication
     Dosage: UNK
     Route: 065
  5. ASCORBIC ACID [Concomitant]
     Active Substance: ASCORBIC ACID
     Indication: Product used for unknown indication
     Dosage: 500 MILLIGRAM, QD (1/2 TAB) 250 MG IN THE MORNING, (1/2 TAB) 250 MG IN THE EVENING
     Route: 065

REACTIONS (4)
  - Gastrointestinal ulcer haemorrhage [Unknown]
  - Haemoglobin decreased [Unknown]
  - Product dose omission issue [Unknown]
  - Intentional product use issue [Unknown]

NARRATIVE: CASE EVENT DATE: 20210101
